FAERS Safety Report 7710927-0 (Version None)
Quarter: 2011Q3

REPORT INFORMATION
  Report Type: 
  Country: None (occurrence: None)
  Receive Date: 20110825
  Receipt Date: 20110812
  Transmission Date: 20111222
  Serious: Yes (Other)
  Sender: FDA-Public Use
  Company Number: TR-GENENTECH-323273

PATIENT
  Age: 48 Year
  Sex: Male

DRUGS (1)
  1. LUCENTIS [Suspect]
     Indication: CHORIORETINAL ATROPHY
     Dosage: 0.5 MG, UNK
     Route: 031

REACTIONS (1)
  - CHOROIDAL NEOVASCULARISATION [None]
